FAERS Safety Report 14371152 (Version 1)
Quarter: 2018Q1

REPORT INFORMATION
  Report Type: Spontaneous
  Country: IT (occurrence: IT)
  Receive Date: 20180110
  Receipt Date: 20180110
  Transmission Date: 20180509
  Serious: Yes (Hospitalization, Other)
  Sender: FDA-Public Use
  Company Number: IT-AUROBINDO-AUR-APL-2017-42799

PATIENT
  Age: 35 Year
  Sex: Female

DRUGS (1)
  1. AMOXICILLIN+CLAVULANIC ACID [Suspect]
     Active Substance: AMOXICILLIN\CLAVULANIC ACID
     Indication: PHARYNGOTONSILLITIS
     Dosage: 1 G, DAILY
     Route: 065

REACTIONS (13)
  - White blood cell count increased [Recovered/Resolved with Sequelae]
  - Face oedema [Recovered/Resolved with Sequelae]
  - Rash erythematous [Recovered/Resolved with Sequelae]
  - C-reactive protein increased [Recovered/Resolved with Sequelae]
  - Red blood cell sedimentation rate increased [Recovered/Resolved with Sequelae]
  - Skin hyperpigmentation [Unknown]
  - Acute generalised exanthematous pustulosis [Recovered/Resolved with Sequelae]
  - Lymphadenopathy [Recovered/Resolved with Sequelae]
  - Pyrexia [Recovered/Resolved with Sequelae]
  - Eczema [Recovered/Resolved with Sequelae]
  - Acanthosis [Recovered/Resolved with Sequelae]
  - Localised oedema [Recovered/Resolved with Sequelae]
  - Rash pustular [Recovered/Resolved with Sequelae]
